FAERS Safety Report 16958026 (Version 2)
Quarter: 2019Q4

REPORT INFORMATION
  Report Type: Spontaneous
  Country: US (occurrence: US)
  Receive Date: 20191024
  Receipt Date: 20191204
  Transmission Date: 20200122
  Serious: Yes (Hospitalization, Other)
  Sender: FDA-Public Use
  Company Number: US-JNJFOC-20191029502

PATIENT
  Age: 64 Year
  Sex: Male

DRUGS (2)
  1. INVOKANA [Suspect]
     Active Substance: CANAGLIFLOZIN
     Indication: DIABETES MELLITUS
  2. INVOKANA [Suspect]
     Active Substance: CANAGLIFLOZIN
     Indication: DIABETES MELLITUS MANAGEMENT
     Route: 048
     Dates: start: 201405

REACTIONS (8)
  - Toe amputation [Unknown]
  - Soft tissue necrosis [Unknown]
  - Cellulitis [Unknown]
  - Cellulitis of male external genital organ [Unknown]
  - Osteomyelitis [Unknown]
  - Diabetic foot [Unknown]
  - Localised infection [Unknown]
  - Arthritis bacterial [Unknown]

NARRATIVE: CASE EVENT DATE: 201405
